FAERS Safety Report 12546734 (Version 1)
Quarter: 2016Q3

REPORT INFORMATION
  Report Type: Spontaneous
  Country: FR (occurrence: FR)
  Receive Date: 20160711
  Receipt Date: 20160711
  Transmission Date: 20161109
  Serious: Yes (Other)
  Sender: FDA-Public Use
  Company Number: FR-JNJFOC-20160627283

PATIENT
  Age: 59 Year
  Sex: Female

DRUGS (4)
  1. LAMALINE [Concomitant]
     Active Substance: ACETAMINOPHEN\CAFFEINE\OPIUM
     Indication: PAIN
     Route: 065
  2. STELARA [Suspect]
     Active Substance: USTEKINUMAB
     Indication: PSORIATIC ARTHROPATHY
     Route: 058
     Dates: start: 20160111
  3. SMECTA [Concomitant]
     Active Substance: MONTMORILLONITE
     Indication: DIARRHOEA
     Route: 065
  4. METOJECT [Suspect]
     Active Substance: METHOTREXATE SODIUM
     Indication: PSORIATIC ARTHROPATHY
     Route: 058
     Dates: start: 2010

REACTIONS (1)
  - Basal cell carcinoma [Recovered/Resolved]

NARRATIVE: CASE EVENT DATE: 201602
